FAERS Safety Report 5370121-8 (Version None)
Quarter: 2007Q2

REPORT INFORMATION
  Report Type: 
  Country: None (occurrence: None)
  Receive Date: 20070626
  Receipt Date: 20070613
  Transmission Date: 20071010
  Serious: Yes (Other)
  Sender: FDA-Public Use
  Company Number: JP-ELI_LILLY_AND_COMPANY-JP200702000610

PATIENT
  Age: 23 Year
  Sex: Female

DRUGS (6)
  1. HUMALOG [Suspect]
     Indication: DIABETES MELLITUS INSULIN-DEPENDENT
     Dosage: 30 U, DAILY (1/D)
     Route: 058
     Dates: start: 20070124, end: 20070131
  2. PARIET [Concomitant]
     Dates: end: 20070129
  3. GASTROZEPIN [Concomitant]
     Dosage: UNK, UNK
     Dates: end: 20070129
  4. MUCOSTA [Concomitant]
     Dosage: UNK, UNK
     Dates: end: 20070129
  5. MALFA [Concomitant]
     Dates: end: 20070129
  6. ALLOID G [Concomitant]
     Dosage: UNK, UNK
     Dates: end: 20070129

REACTIONS (1)
  - LIVER DISORDER [None]
